FAERS Safety Report 4293669-6 (Version None)
Quarter: 2004Q1

REPORT INFORMATION
  Report Type: 
  Country: None (occurrence: None)
  Receive Date: 20040212
  Receipt Date: 20040204
  Transmission Date: 20041129
  Serious: Yes (Hospitalization, Other)
  Sender: FDA-Public Use
  Company Number: FR-BRISTOL-MYERS SQUIBB COMPANY-12495503

PATIENT
  Age: 81 Year
  Sex: Female

DRUGS (3)
  1. COUMADIN [Suspect]
     Route: 048
     Dates: start: 20031015, end: 20031019
  2. CLAMOXYL [Interacting]
     Route: 042
     Dates: start: 20031019, end: 20031026
  3. OFLOCET [Interacting]
     Route: 042
     Dates: start: 20031019, end: 20031026

REACTIONS (4)
  - BREAST NECROSIS [None]
  - DRUG INTERACTION [None]
  - HAEMATOMA [None]
  - INTERNATIONAL NORMALISED RATIO INCREASED [None]
